FAERS Safety Report 23986688 (Version 1)
Quarter: 2024Q2

REPORT INFORMATION
  Report Type: Spontaneous
  Country: US (occurrence: None)
  Receive Date: 20240617
  Receipt Date: 20240617
  Transmission Date: 20240716
  Serious: No
  Sender: FDA-Public Use
  Company Number: None

PATIENT
  Age: 45 Year
  Sex: Male
  Weight: 101.25 kg

DRUGS (1)
  1. INVEGA SUSTENNA [Suspect]
     Active Substance: PALIPERIDONE PALMITATE
     Dates: start: 20210101, end: 20240617

REACTIONS (3)
  - Weight increased [None]
  - Depressed mood [None]
  - Suicidal ideation [None]

NARRATIVE: CASE EVENT DATE: 20210701
